FAERS Safety Report 6536986-9 (Version None)
Quarter: 2010Q1

REPORT INFORMATION
  Report Type: 
  Country: None (occurrence: None)
  Receive Date: 20100107
  Receipt Date: 20091230
  Transmission Date: 20100710
  Serious: No
  Sender: FDA-Public Use
  Company Number: 20097702

PATIENT
  Sex: Male

DRUGS (1)
  1. LIORESAL [Suspect]
     Indication: MUSCLE SPASTICITY
     Dosage: 100 - 325 MCG, DAILY, INTRATHECAL
     Route: 037

REACTIONS (9)
  - ABDOMINAL PAIN [None]
  - DEVICE BREAKAGE [None]
  - DEVICE LEAKAGE [None]
  - DRUG INEFFECTIVE [None]
  - EXTRAVASATION [None]
  - HYPERTONIA [None]
  - INTRACRANIAL HYPOTENSION [None]
  - MEDICAL DEVICE COMPLICATION [None]
  - PSEUDOMENINGOCELE [None]
